FAERS Safety Report 5793748-8 (Version None)
Quarter: 2008Q2

REPORT INFORMATION
  Report Type: 
  Country: None (occurrence: None)
  Receive Date: 20080627
  Receipt Date: 20080623
  Transmission Date: 20081010
  Serious: Yes (Death, Hospitalization)
  Sender: FDA-Public Use
  Company Number: GB-GENENTECH-258825

PATIENT
  Sex: Female
  Weight: 55.2 kg

DRUGS (2)
  1. BEVACIZUMAB [Suspect]
     Indication: BREAST CANCER METASTATIC
     Dosage: 1002 MG, Q3W
     Route: 042
     Dates: start: 20071023
  2. DOCETAXEL [Suspect]
     Indication: BREAST CANCER METASTATIC
     Dosage: 60 MG/M2, UNK
     Dates: start: 20071023

REACTIONS (1)
  - RENAL FAILURE [None]
